FAERS Safety Report 25042612 (Version 1)
Quarter: 2025Q1

REPORT INFORMATION
  Report Type: Spontaneous
  Country: NZ (occurrence: NZ)
  Receive Date: 20250305
  Receipt Date: 20250305
  Transmission Date: 20250409
  Serious: Yes (Other)
  Sender: ORGANON
  Company Number: None

PATIENT
  Age: 67 Year
  Sex: Female

DRUGS (1)
  1. FOSAMAX PLUS D [Suspect]
     Active Substance: ALENDRONATE SODIUM\CHOLECALCIFEROL

REACTIONS (6)
  - Productive cough [Unknown]
  - Dyspnoea [Unknown]
  - Rash [Unknown]
  - Dermatitis [Unknown]
  - Dyspepsia [Unknown]
  - Swelling face [Unknown]
